FAERS Safety Report 15368969 (Version 1)
Quarter: 2018Q3

REPORT INFORMATION
  Report Type: Report from Study
  Country: DE (occurrence: DE)
  Receive Date: 20180911
  Receipt Date: 20180911
  Transmission Date: 20181010
  Serious: No
  Sender: FDA-Public Use
  Company Number: DE-ROCHE-2182332

PATIENT
  Sex: Female
  Weight: 63 kg

DRUGS (8)
  1. OCRELIZUMAB. [Suspect]
     Active Substance: OCRELIZUMAB
     Indication: MULTIPLE SCLEROSIS
     Route: 042
     Dates: start: 20180628, end: 20180628
  2. RANITIDIN [Concomitant]
     Active Substance: RANITIDINE HYDROCHLORIDE
     Indication: PROPHYLAXIS
     Route: 048
     Dates: start: 20180613, end: 20180615
  3. SPASMEX (GERMANY) [Concomitant]
     Dosage: INDICATION:BLADDER PROBLEMS
     Route: 065
     Dates: start: 20161212
  4. AERIUS (GERMANY) [Concomitant]
     Indication: PROPHYLAXIS
     Route: 048
     Dates: start: 20180613, end: 20180615
  5. OCRELIZUMAB. [Suspect]
     Active Substance: OCRELIZUMAB
     Indication: MULTIPLE SCLEROSIS
     Route: 042
     Dates: start: 20180614, end: 20180614
  6. BACLOFEN. [Concomitant]
     Active Substance: BACLOFEN
     Indication: MUSCLE SPASTICITY
     Dosage: EXACT DOSE AND INTERVAL UNK
     Route: 065
  7. PREDNISOLUT [Concomitant]
     Active Substance: PREDNISOLONE
     Indication: PROPHYLAXIS
     Route: 042
     Dates: start: 20180614, end: 20180614
  8. FAMPYRA [Concomitant]
     Active Substance: DALFAMPRIDINE
     Dosage: INDICATION:IMPROVEMENT OF WALKING DISTANCE
     Route: 048
     Dates: start: 20120202

REACTIONS (1)
  - Urinary tract infection [Recovered/Resolved]
